FAERS Safety Report 17115473 (Version 2)
Quarter: 2020Q2

REPORT INFORMATION
  Report Type: Report from Study
  Country: None (occurrence: DE)
  Receive Date: 20191205
  Receipt Date: 20200512
  Transmission Date: 20200713
  Serious: Yes (Death, Hospitalization, Other)
  Sender: FDA-Public Use
  Company Number: DE-ABBVIE-19K-062-3181137-00

PATIENT
  Age: 58 Year
  Sex: Male

DRUGS (2)
  1. PREDNISONE. [Concomitant]
     Active Substance: PREDNISONE
     Indication: PRODUCT USED FOR UNKNOWN INDICATION
  2. HUMIRA [Suspect]
     Active Substance: ADALIMUMAB
     Indication: RHEUMATOID ARTHRITIS
     Route: 058
     Dates: end: 20190705

REACTIONS (14)
  - Peripheral arterial occlusive disease [Fatal]
  - Musculoskeletal disorder [Unknown]
  - Pain in extremity [Unknown]
  - Postoperative delirium [Unknown]
  - Skin ulcer [Unknown]
  - Postoperative wound complication [Fatal]
  - Limb injury [Unknown]
  - Stress [Unknown]
  - Skin ulcer [Unknown]
  - Oedema peripheral [Unknown]
  - Serratia infection [Unknown]
  - Peripheral coldness [Unknown]
  - Peripheral swelling [Unknown]
  - Skin discolouration [Unknown]

NARRATIVE: CASE EVENT DATE: 2019
